FAERS Safety Report 6737722-3 (Version None)
Quarter: 2010Q2

REPORT INFORMATION
  Report Type: 
  Country: None (occurrence: None)
  Receive Date: 20100524
  Receipt Date: 20100513
  Transmission Date: 20101027
  Serious: Yes (Other)
  Sender: FDA-Public Use
  Company Number: PHHY2010US31347

PATIENT
  Sex: Female
  Weight: 49.887 kg

DRUGS (5)
  1. EXTAVIA [Suspect]
     Indication: MULTIPLE SCLEROSIS
     Dosage: 0.125 MG, QOD
     Route: 058
     Dates: start: 20091130
  2. LEXAPRO [Concomitant]
     Dosage: 20 MG, QD
  3. BACLOFEN [Concomitant]
     Dosage: 20 MG, QD
  4. KLONOPIN [Concomitant]
     Dosage: 01 MG, QD
  5. ADVIL LIQUI-GELS [Concomitant]
     Dosage: UNK

REACTIONS (5)
  - DEPRESSION [None]
  - FATIGUE [None]
  - INCORRECT DOSE ADMINISTERED [None]
  - SOMNOLENCE [None]
  - URINARY INCONTINENCE [None]
